FAERS Safety Report 10068133 (Version 1)
Quarter: 2014Q2

REPORT INFORMATION
  Report Type: Spontaneous
  Country: HU (occurrence: HU)
  Receive Date: 20140409
  Receipt Date: 20140409
  Transmission Date: 20141212
  Serious: Yes (Other)
  Sender: FDA-Public Use
  Company Number: HU-PFIZER INC-2014095090

PATIENT
  Age: 64 Year
  Sex: Female

DRUGS (10)
  1. AMLODIPINE BESILATE [Suspect]
     Dosage: 5MG (MORNING), 10MG (EVENING)
  2. DOXAZOSIN MESILATE [Suspect]
     Dosage: 4 MG, UNK
  3. METOPROLOL TARTRATE [Suspect]
     Dosage: 50 MG, UNK
  4. FUROSEMIDE [Suspect]
     Dosage: 20 MG, UNK
  5. TELMISARTAN [Suspect]
     Dosage: 80 MG, UNK
  6. ENALAPRIL [Suspect]
     Dosage: 10 MG, UNK
  7. EZETIMIBE [Concomitant]
     Dosage: 40 MG, UNK
  8. KALIUM [Concomitant]
     Dosage: 1 MG, UNK
  9. SIMVASTATIN [Concomitant]
     Dosage: 20 MG, UNK
  10. METFORMIN [Concomitant]
     Dosage: 1000 MG, UNK

REACTIONS (6)
  - Blood pressure inadequately controlled [Recovered/Resolved]
  - Renal impairment [Recovered/Resolved]
  - Oedema peripheral [Recovered/Resolved]
  - Tinnitus [Recovered/Resolved]
  - Erythema [Unknown]
  - Dizziness [Recovered/Resolved]
